FAERS Safety Report 25101201 (Version 1)
Quarter: 2025Q1

REPORT INFORMATION
  Report Type: Report from Study
  Country: US (occurrence: US)
  Receive Date: 20250320
  Receipt Date: 20250320
  Transmission Date: 20250409
  Serious: Yes (Other)
  Sender: ALEXION PHARMACEUTICALS
  Company Number: US-AstraZeneca-CH-00828092A

PATIENT

DRUGS (1)
  1. OSIMERTINIB [Suspect]
     Active Substance: OSIMERTINIB
     Indication: Lung neoplasm malignant
     Dosage: 80 MILLIGRAM, QD

REACTIONS (7)
  - Diabetic foot infection [Unknown]
  - Diabetes mellitus [Unknown]
  - Pain [Unknown]
  - Impaired healing [Unknown]
  - Onychomadesis [Unknown]
  - Osteomyelitis [Unknown]
  - Postoperative wound infection [Unknown]
